FAERS Safety Report 6142550-6 (Version None)
Quarter: 2009Q2

REPORT INFORMATION
  Report Type: 
  Country: None (occurrence: None)
  Receive Date: 20090403
  Receipt Date: 20090325
  Transmission Date: 20091009
  Serious: Yes (Hospitalization, Other)
  Sender: FDA-Public Use
  Company Number: GB-JNJFOC-20090306861

PATIENT
  Age: 58 Year
  Sex: Female
  Weight: 71 kg

DRUGS (10)
  1. REMICADE [Suspect]
     Indication: RHEUMATOID ARTHRITIS
     Route: 042
  2. CELECOXIB [Concomitant]
  3. ATENOLOL [Concomitant]
  4. CODYDRAMOL [Concomitant]
  5. DOXAZOSIN MESYLATE [Concomitant]
  6. FERROUS SULFATE TAB [Concomitant]
  7. LANSOPRAZOLE [Concomitant]
  8. PIROXICAM [Concomitant]
  9. VITAMIN D [Concomitant]
  10. METHOTREXATE [Concomitant]

REACTIONS (1)
  - CORONARY ARTERY DISEASE [None]
